FAERS Safety Report 7986758-3 (Version None)
Quarter: 2011Q4

REPORT INFORMATION
  Report Type: 
  Country: None (occurrence: None)
  Receive Date: 20111216
  Receipt Date: 20110222
  Transmission Date: 20120403
  Serious: No
  Sender: FDA-Public Use
  Company Number: US-BRISTOL-MYERS SQUIBB COMPANY-15563265

PATIENT
  Age: 55 Year
  Sex: Male

DRUGS (4)
  1. CHOLESTEROL MEDICATION [Concomitant]
  2. ABILIFY [Suspect]
     Indication: DEPRESSION
     Dosage: ORIGINALLY ON 2MG AND WAS INCREASED TO 5MG
  3. BLOOD PRESSURE MEDICATION [Concomitant]
  4. LEXAPRO [Concomitant]
     Indication: ANTIDEPRESSANT THERAPY

REACTIONS (1)
  - TREMOR [None]
